FAERS Safety Report 4436491-X (Version None)
Quarter: 2004Q3

REPORT INFORMATION
  Report Type: 
  Country: None (occurrence: None)
  Receive Date: 20040830
  Receipt Date: 20040527
  Transmission Date: 20050211
  Serious: No
  Sender: FDA-Public Use
  Company Number: US-BRISTOL-MYERS SQUIBB COMPANY-12598439

PATIENT
  Age: 51 Year
  Sex: Female
  Weight: 54 kg

DRUGS (2)
  1. ABILIFY [Suspect]
     Indication: SCHIZOPHRENIA
     Dosage: INCR TO 1 3/4 TABLETS OF 5 MG DAILY
     Route: 048
     Dates: start: 20040506
  2. ZOCOR [Concomitant]

REACTIONS (2)
  - BRUXISM [None]
  - JOINT STIFFNESS [None]
